FAERS Safety Report 6988285-9 (Version None)
Quarter: 2010Q3

REPORT INFORMATION
  Report Type: 
  Country: None (occurrence: None)
  Receive Date: 20100916
  Receipt Date: 20100907
  Transmission Date: 20110219
  Serious: Yes (Other)
  Sender: FDA-Public Use
  Company Number: GB-JNJFOC-20100500512

PATIENT
  Sex: Male
  Weight: 105 kg

DRUGS (2)
  1. RISPERDAL CONSTA [Suspect]
     Indication: PSYCHOTIC DISORDER
     Route: 030
  2. VENLAFAXINE [Suspect]
     Indication: DEPRESSION
     Route: 065

REACTIONS (3)
  - ANGINA PECTORIS [None]
  - HEADACHE [None]
  - HYPERTENSION [None]
